FAERS Safety Report 11536920 (Version 1)
Quarter: 2015Q3

REPORT INFORMATION
  Report Type: Spontaneous
  Country: US (occurrence: None)
  Receive Date: 20150921
  Receipt Date: 20150921
  Transmission Date: 20151125
  Serious: Yes (Life-Threatening, Hospitalization, Disabling, Other)
  Sender: FDA-Public Use
  Company Number: None

PATIENT
  Age: 66 Year
  Sex: Female
  Weight: 81.65 kg

DRUGS (6)
  1. FOLIC ACID. [Concomitant]
     Active Substance: FOLIC ACID
  2. LEVOTHYROXINE. [Concomitant]
     Active Substance: LEVOTHYROXINE
  3. CRESTOR [Concomitant]
     Active Substance: ROSUVASTATIN CALCIUM
  4. EXELON [Suspect]
     Active Substance: RIVASTIGMINE TARTRATE
     Indication: AMNESIA
     Dosage: 1 PATCH A DAY ONCE DAILY APPLIED AS MEDICATED PATCH TO SKIN
     Dates: start: 20150409, end: 20150916
  5. VITAMIN D [Concomitant]
     Active Substance: CHOLECALCIFEROL
  6. CALCIUM [Concomitant]
     Active Substance: CALCIUM

REACTIONS (4)
  - Diarrhoea [None]
  - Vomiting [None]
  - Syncope [None]
  - Heart rate decreased [None]

NARRATIVE: CASE EVENT DATE: 20150915
